FAERS Safety Report 22187184 (Version 1)
Quarter: 2023Q2

REPORT INFORMATION
  Report Type: Spontaneous
  Country: SI (occurrence: SI)
  Receive Date: 20230407
  Receipt Date: 20230407
  Transmission Date: 20230722
  Serious: Yes (Other)
  Sender: FDA-Public Use
  Company Number: SI-PFIZER INC-202300145907

PATIENT
  Age: 47 Year
  Sex: Male

DRUGS (7)
  1. MEDROL [Suspect]
     Active Substance: METHYLPREDNISOLONE
     Indication: Colitis ulcerative
     Dosage: UNK
     Route: 048
     Dates: start: 201804
  2. MEDROL [Suspect]
     Active Substance: METHYLPREDNISOLONE
     Dosage: REDUCED BELOW12MG, DAILY
     Route: 048
     Dates: end: 202010
  3. AZATHIOPRINE [Concomitant]
     Active Substance: AZATHIOPRINE
     Dosage: UNK
     Dates: start: 201809
  4. ADALIMUMAB [Concomitant]
     Active Substance: ADALIMUMAB
     Dosage: UNK
     Dates: start: 201811
  5. METHYLPREDNISOLONE [Concomitant]
     Active Substance: METHYLPREDNISOLONE
     Dosage: 40 MG, WEEKLY
     Route: 058
  6. INFLIXIMAB [Concomitant]
     Active Substance: INFLIXIMAB
     Dosage: 10 MG/KG, MONTHLY (EVERY 4 WEEKS)
     Dates: start: 201904
  7. VEDOLIZUMAB [Concomitant]
     Active Substance: VEDOLIZUMAB
     Dosage: UNK
     Dates: start: 201912

REACTIONS (5)
  - Steroid diabetes [Recovered/Resolved]
  - Colitis ulcerative [Unknown]
  - Myopathy [Recovered/Resolved]
  - Myalgia [Recovered/Resolved]
  - Insomnia [Recovered/Resolved]

NARRATIVE: CASE EVENT DATE: 20180101
